FAERS Safety Report 11177363 (Version 1)
Quarter: 2015Q2

REPORT INFORMATION
  Report Type: Spontaneous
  Country: US (occurrence: None)
  Receive Date: 20150609
  Receipt Date: 20150609
  Transmission Date: 20150821
  Serious: No
  Sender: FDA-Public Use
  Company Number: None

PATIENT
  Age: 68 Year
  Sex: Female

DRUGS (8)
  1. ONDANSETRON (ZOFRAN ODT) [Concomitant]
  2. LIORESAL [Concomitant]
     Active Substance: BACLOFEN
  3. OXYCODONE-ACETAMINOPHEN (PERCOCET/ENDOCET) [Concomitant]
  4. AMPYRA [Suspect]
     Active Substance: DALFAMPRIDINE
     Indication: MULTIPLE SCLEROSIS
     Route: 048
     Dates: start: 201005
  5. FERROUS SULFATE [Concomitant]
     Active Substance: FERROUS SULFATE\FERROUS SULFATE, DRIED
  6. SENNOSIDES (SENOKOT) [Concomitant]
  7. GLATIRAMER (COPAXONE) [Concomitant]
  8. LOVENOX [Concomitant]
     Active Substance: ENOXAPARIN SODIUM

REACTIONS (4)
  - Haematocrit abnormal [None]
  - Haemoglobin abnormal [None]
  - Platelet count abnormal [None]
  - Red blood cell count abnormal [None]

NARRATIVE: CASE EVENT DATE: 20150508
